FAERS Safety Report 11366434 (Version 1)
Quarter: 2015Q3

REPORT INFORMATION
  Report Type: Spontaneous
  Country: US (occurrence: US)
  Receive Date: 20150811
  Receipt Date: 20150811
  Transmission Date: 20151125
  Serious: No
  Sender: FDA-Public Use
  Company Number: US-ELI_LILLY_AND_COMPANY-US201302000515

PATIENT
  Sex: Male

DRUGS (7)
  1. METFORMIN [Concomitant]
     Active Substance: METFORMIN HYDROCHLORIDE
  2. VESICARE [Concomitant]
     Active Substance: SOLIFENACIN SUCCINATE
  3. ASA [Concomitant]
     Active Substance: ASPIRIN
  4. OMEPRAZOL [Concomitant]
     Active Substance: OMEPRAZOLE
  5. ZETIA [Concomitant]
     Active Substance: EZETIMIBE
     Dosage: 10MG, UNK
  6. AXIRON [Suspect]
     Active Substance: TESTOSTERONE
     Dosage: UNK
     Dates: start: 201211
  7. CITALOPRAM [Concomitant]
     Active Substance: CITALOPRAM HYDROBROMIDE
     Dosage: 20MG, UNK

REACTIONS (2)
  - Product use issue [Unknown]
  - Prostate examination abnormal [Unknown]
